FAERS Safety Report 24695978 (Version 1)
Quarter: 2024Q4

REPORT INFORMATION
  Report Type: Spontaneous
  Country: JP (occurrence: JP)
  Receive Date: 20241204
  Receipt Date: 20241204
  Transmission Date: 20250115
  Serious: Yes (Hospitalization)
  Sender: GLAND PHARMA LTD
  Company Number: JP-GLANDPHARMA-JP-2024GLNLIT01103

PATIENT
  Age: 83 Year
  Sex: Female

DRUGS (1)
  1. PACLITAXEL [Suspect]
     Active Substance: PACLITAXEL
     Indication: Peripheral artery stenosis
     Route: 065

REACTIONS (2)
  - Vascular pseudoaneurysm [Recovering/Resolving]
  - Product use in unapproved indication [Unknown]
